FAERS Safety Report 19412055 (Version 1)
Quarter: 2021Q2

REPORT INFORMATION
  Report Type: Spontaneous
  Country: US (occurrence: US)
  Receive Date: 20210614
  Receipt Date: 20210614
  Transmission Date: 20210717
  Serious: No
  Sender: FDA-Public Use
  Company Number: US-COVIS PHARMA GMBH-2021COV00005

PATIENT
  Sex: Female

DRUGS (2)
  1. UNSPECIFIED COVID?19 VACCINE [Concomitant]
  2. PRILOSEC [Suspect]
     Active Substance: OMEPRAZOLE MAGNESIUM
     Dosage: UNK
     Route: 048

REACTIONS (2)
  - Hiatus hernia [Unknown]
  - Cough [Unknown]
